FAERS Safety Report 8898368 (Version 1)
Quarter: 2012Q4

REPORT INFORMATION
  Report Type: 
  Country: FR (occurrence: FR)
  Receive Date: 20121109
  Receipt Date: 20121109
  Transmission Date: 20130627
  Serious: Yes (Hospitalization)
  Sender: FDA-Public Use
  Company Number: FR-009507513-1112FRA00055

PATIENT
  Age: 48 Year
  Sex: Female

DRUGS (4)
  1. ISENTRESS [Suspect]
     Indication: HIV INFECTION
     Dosage: 400 mg, bid
     Route: 048
     Dates: start: 20110101
  2. TRUVADA [Suspect]
     Indication: HIV INFECTION
     Dosage: 200mg-245
     Route: 048
     Dates: start: 20110101
  3. THIAMINE [Concomitant]
  4. PYRIDOXINE [Concomitant]

REACTIONS (1)
  - Pyramidal tract syndrome [Recovered/Resolved]
